FAERS Safety Report 19048204 (Version 1)
Quarter: 2021Q1

REPORT INFORMATION
  Report Type: Spontaneous
  Country: GR (occurrence: GR)
  Receive Date: 20210323
  Receipt Date: 20210323
  Transmission Date: 20210420
  Serious: Yes (Hospitalization)
  Sender: FDA-Public Use
  Company Number: GR-009507513-2103GRC005492

PATIENT
  Sex: Female
  Weight: 60 kg

DRUGS (11)
  1. LASIX [Suspect]
     Active Substance: FUROSEMIDE
  2. VEPESID [Suspect]
     Active Substance: ETOPOSIDE
  3. EPREX [Suspect]
     Active Substance: ERYTHROPOIETIN
  4. VALTREX [Suspect]
     Active Substance: VALACYCLOVIR HYDROCHLORIDE
  5. DOXIL [Suspect]
     Active Substance: DOXORUBICIN HYDROCHLORIDE
  6. MABTHERA [Suspect]
     Active Substance: RITUXIMAB
  7. CUBICIN [Suspect]
     Active Substance: DAPTOMYCIN
  8. ALDACTONE [Suspect]
     Active Substance: SPIRONOLACTONE
  9. LOSEC [Suspect]
     Active Substance: OMEPRAZOLE
  10. CANCIDAS [Suspect]
     Active Substance: CASPOFUNGIN ACETATE
  11. NORVASC [Suspect]
     Active Substance: AMLODIPINE BESYLATE

REACTIONS (2)
  - Neoplasm progression [Unknown]
  - Diffuse large B-cell lymphoma refractory [Unknown]
